FAERS Safety Report 9856344 (Version 1)
Quarter: 2014Q1

REPORT INFORMATION
  Report Type: Spontaneous
  Country: US (occurrence: None)
  Receive Date: 20140128
  Receipt Date: 20140128
  Transmission Date: 20141002
  Serious: Yes (Death, Other)
  Sender: FDA-Public Use
  Company Number: 2014AP000438

PATIENT
  Age: 50 Year
  Sex: Male

DRUGS (4)
  1. CARBAMAZEPINE [Suspect]
     Route: 048
  2. CLOMIPRAMINE [Suspect]
     Route: 048
  3. CARBAMAZEPINE [Concomitant]
  4. CLOMIPRAMINE [Concomitant]

REACTIONS (9)
  - Completed suicide [None]
  - Pulmonary oedema [None]
  - Cerebral infarction [None]
  - Toxicity to various agents [None]
  - Convulsion [None]
  - Hypotension [None]
  - Bezoar [None]
  - Incorrect dose administered [None]
  - Exposure via ingestion [None]
